FAERS Safety Report 13138270 (Version 1)
Quarter: 2017Q1

REPORT INFORMATION
  Report Type: Spontaneous
  Country: US (occurrence: US)
  Receive Date: 20170121
  Receipt Date: 20170121
  Transmission Date: 20170428
  Serious: Yes (Death, Hospitalization)
  Sender: FDA-Public Use
  Company Number: None

PATIENT
  Age: 88 Year
  Sex: Female
  Weight: 56.2 kg

DRUGS (1)
  1. MEMANTINE HYDROCHLORIDE. [Suspect]
     Active Substance: MEMANTINE HYDROCHLORIDE
     Dates: end: 20161223

REACTIONS (7)
  - Dysphagia [None]
  - Pleural effusion [None]
  - Vomiting [None]
  - Dehydration [None]
  - Metastases to central nervous system [None]
  - Dyspnoea [None]
  - Non-small cell lung cancer stage IV [None]

NARRATIVE: CASE EVENT DATE: 20170109
